FAERS Safety Report 9179059 (Version 2)
Quarter: 2013Q2

REPORT INFORMATION
  Report Type: Spontaneous
  Country: US (occurrence: US)
  Receive Date: 20130321
  Receipt Date: 20130508
  Transmission Date: 20140414
  Serious: No
  Sender: FDA-Public Use
  Company Number: US-TEVA-393089USA

PATIENT
  Age: 46 Year
  Sex: Female
  Weight: 158.9 kg

DRUGS (6)
  1. PROAIR HFA [Suspect]
     Indication: ASTHMA
     Dosage: 180 MCG 2 PUFFS BID
     Dates: start: 201210
  2. LEVEMIR [Concomitant]
  3. LISINOPRIL [Concomitant]
  4. PROZAC [Concomitant]
  5. CLONAZEPAM [Concomitant]
  6. JANUMET [Concomitant]

REACTIONS (1)
  - Cough [Recovered/Resolved]
